FAERS Safety Report 22541279 (Version 2)
Quarter: 2023Q2

REPORT INFORMATION
  Report Type: Spontaneous
  Country: CN (occurrence: CN)
  Receive Date: 20230609
  Receipt Date: 20230613
  Transmission Date: 20230721
  Serious: Yes (Hospitalization)
  Sender: FDA-Public Use
  Company Number: CN-BAYER-2023A078839

PATIENT
  Age: 16 Year
  Sex: Female

DRUGS (1)
  1. YAZ [Suspect]
     Active Substance: DROSPIRENONE\ETHINYL ESTRADIOL
     Indication: Polycystic ovaries
     Dosage: UNK
     Route: 048
     Dates: start: 2020, end: 2020

REACTIONS (4)
  - Moyamoya disease [None]
  - Retinal vein occlusion [None]
  - Macular oedema [Recovered/Resolved]
  - Off label use [None]

NARRATIVE: CASE EVENT DATE: 20200101
